FAERS Safety Report 16265028 (Version 2)
Quarter: 2019Q2

REPORT INFORMATION
  Report Type: Report from Study
  Country: None (occurrence: US)
  Receive Date: 20190502
  Receipt Date: 20190503
  Transmission Date: 20190711
  Serious: Yes (Hospitalization)
  Sender: FDA-Public Use
  Company Number: US-ABBVIE-19K-163-2764623-00

PATIENT
  Age: 71 Year
  Sex: Female

DRUGS (3)
  1. AMOXICILLIN AND CLAVULANATE POTASSIUM [Concomitant]
     Active Substance: AMOXICILLIN\CLAVULANATE POTASSIUM
     Indication: PRODUCT USED FOR UNKNOWN INDICATION
  2. VENCLEXTA [Suspect]
     Active Substance: VENETOCLAX
     Indication: MYELODYSPLASTIC SYNDROME
     Route: 048
     Dates: start: 20190301, end: 2019
  3. LOPERAMIDE HCL [Concomitant]
     Active Substance: LOPERAMIDE HYDROCHLORIDE
     Indication: PRODUCT USED FOR UNKNOWN INDICATION

REACTIONS (4)
  - Myelodysplastic syndrome [Unknown]
  - Asthenia [Unknown]
  - Fatigue [Unknown]
  - Rash generalised [Unknown]

NARRATIVE: CASE EVENT DATE: 2019
